FAERS Safety Report 5488267-2 (Version None)
Quarter: 2007Q4

REPORT INFORMATION
  Report Type: 
  Country: None (occurrence: None)
  Receive Date: 20071017
  Receipt Date: 20070920
  Transmission Date: 20080405
  Serious: Yes (Hospitalization)
  Sender: FDA-Public Use
  Company Number: GB-ROCHE-524407

PATIENT
  Age: 63 Year
  Sex: Male
  Weight: 131.5 kg

DRUGS (8)
  1. ORLISTAT [Suspect]
     Indication: OBESITY
     Route: 048
     Dates: start: 20070907
  2. ASPIRIN [Concomitant]
     Route: 048
  3. ENALAPRIL MALEATE [Concomitant]
     Indication: HYPERTENSION
     Route: 048
  4. SIMVASTATIN [Concomitant]
     Route: 048
  5. AMLODIPINE [Concomitant]
     Indication: HYPERTENSION
     Route: 048
  6. SPIROLACTONE [Concomitant]
     Indication: HYPERTENSION
     Route: 048
  7. COMBIVENT [Concomitant]
     Indication: ASTHMA
     Route: 055
  8. METFORMIN [Concomitant]
     Route: 048
     Dates: end: 20070910

REACTIONS (4)
  - ANAEMIA [None]
  - DYSPNOEA [None]
  - HEART RATE IRREGULAR [None]
  - RENAL DISORDER [None]
